FAERS Safety Report 9787470 (Version 3)
Quarter: 2014Q3

REPORT INFORMATION
  Report Type: Spontaneous
  Country: US (occurrence: US)
  Receive Date: 20131230
  Receipt Date: 20140801
  Transmission Date: 20150326
  Serious: No
  Sender: FDA-Public Use
  Company Number: US-009507513-1312USA010025

PATIENT
  Age: 27 Year
  Sex: Female

DRUGS (5)
  1. ASMANEX [Suspect]
     Active Substance: MOMETASONE FUROATE
     Indication: HYPERSENSITIVITY
  2. AZURETTE [Concomitant]
     Active Substance: DESOGESTREL\ETHINYL ESTRADIOL
  3. ASMANEX [Suspect]
     Active Substance: MOMETASONE FUROATE
     Indication: ASTHMA
     Dosage: ONE PUFF/ONCE DAILY
     Route: 055
     Dates: start: 201012
  4. DOXYCYCLINE. [Concomitant]
     Active Substance: DOXYCYCLINE
  5. DOXEPIN HYDROCHLORIDE. [Concomitant]
     Active Substance: DOXEPIN HYDROCHLORIDE

REACTIONS (10)
  - Malaise [Recovering/Resolving]
  - Drug dose omission [Unknown]
  - Underdose [Unknown]
  - Dyspnoea [Recovering/Resolving]
  - Expired product administered [Unknown]
  - Drug ineffective [Recovering/Resolving]
  - Intentional overdose [Unknown]
  - Dyspnoea [Unknown]
  - Chest discomfort [Recovering/Resolving]
  - Product container issue [Unknown]

NARRATIVE: CASE EVENT DATE: 20131218
